FAERS Safety Report 21720502 (Version 2)
Quarter: 2022Q4

REPORT INFORMATION
  Report Type: Other
  Country: MA (occurrence: None)
  Receive Date: 20221213
  Receipt Date: 20221227
  Transmission Date: 20230112
  Serious: Yes (Other)
  Sender: FDA-Public Use
  Company Number: MA-ROCHE-3238883

PATIENT

DRUGS (6)
  1. RITUXIMAB [Suspect]
     Active Substance: RITUXIMAB
     Indication: Secondary immunodeficiency
     Route: 065
  2. MYCOPHENOLATE MOFETIL [Suspect]
     Active Substance: MYCOPHENOLATE MOFETIL
     Indication: Secondary immunodeficiency
     Route: 065
  3. METHOTREXATE [Suspect]
     Active Substance: METHOTREXATE
     Indication: Secondary immunodeficiency
     Route: 065
  4. AZATHIOPRINE [Suspect]
     Active Substance: AZATHIOPRINE
     Indication: Secondary immunodeficiency
     Route: 065
  5. CYCLOPHOSPHAMIDE [Suspect]
     Active Substance: CYCLOPHOSPHAMIDE
     Indication: Secondary immunodeficiency
     Route: 065
  6. IMATINIB [Suspect]
     Active Substance: IMATINIB
     Indication: Secondary immunodeficiency
     Route: 065

REACTIONS (9)
  - Sepsis [Unknown]
  - Endocarditis [Unknown]
  - Arthritis bacterial [Unknown]
  - Cholangitis [Unknown]
  - Respiratory tract infection [Unknown]
  - Urinary tract infection [Unknown]
  - Infection [Unknown]
  - Off label use [Unknown]
  - Off label use [Unknown]
